FAERS Safety Report 9475281 (Version 1)
Quarter: 2013Q3

REPORT INFORMATION
  Report Type: Spontaneous
  Country: CA (occurrence: CA)
  Receive Date: 20130826
  Receipt Date: 20130826
  Transmission Date: 20140515
  Serious: Yes (Death)
  Sender: FDA-Public Use
  Company Number: CA-ROCHE-1266321

PATIENT
  Sex: Male
  Weight: 97.1 kg

DRUGS (8)
  1. AVASTIN [Suspect]
     Indication: GASTROOESOPHAGEAL CANCER
     Route: 042
     Dates: start: 20110805, end: 20121004
  2. FENOFIBRATE [Concomitant]
  3. GLICLAZIDE [Concomitant]
  4. METFORMIN [Concomitant]
     Route: 065
  5. SANDOSTATIN [Concomitant]
  6. ROSUVASTATIN [Concomitant]
  7. WARFARIN [Concomitant]
  8. NEUPOGEN [Concomitant]

REACTIONS (1)
  - Death [Fatal]
